FAERS Safety Report 6401890-3 (Version None)
Quarter: 2009Q4

REPORT INFORMATION
  Report Type: 
  Country: None (occurrence: None)
  Receive Date: 20091015
  Receipt Date: 20091006
  Transmission Date: 20100525
  Serious: Yes (Other)
  Sender: FDA-Public Use
  Company Number: GB-ASTRAZENECA-2009SE18451

PATIENT
  Age: 24 Year
  Sex: Male

DRUGS (3)
  1. BUDESONIDE [Suspect]
     Route: 048
  2. AZATHIOPRINE [Suspect]
  3. ZOPICLONE [Concomitant]

REACTIONS (1)
  - DYSTONIA [None]
